FAERS Safety Report 13716870 (Version 1)
Quarter: 2017Q3

REPORT INFORMATION
  Report Type: Spontaneous
  Country: US (occurrence: US)
  Receive Date: 20170705
  Receipt Date: 20170705
  Transmission Date: 20171127
  Serious: Yes (Other)
  Sender: FDA-Public Use
  Company Number: US-WEST-WARD PHARMACEUTICALS CORP.-US-H14001-17-02173

PATIENT
  Sex: Female
  Weight: 59 kg

DRUGS (7)
  1. FLECAINIDE [Suspect]
     Active Substance: FLECAINIDE
     Route: 048
  2. FLECAINIDE [Suspect]
     Active Substance: FLECAINIDE
     Route: 048
  3. VITAMIN B COMPLEX [Concomitant]
     Active Substance: CYANOCOBALAMIN\DEXPANTHENOL\NIACINAMIDE\PYRIDOXINE HYDROCHLORIDE\RIBOFLAVIN 5^-PHOSPHATE SODIUM\THIAMINE HYDROCHLORIDE\VITAMIN B COMPLEX
     Indication: PRODUCT USED FOR UNKNOWN INDICATION
     Route: 065
  4. FLECAINIDE [Suspect]
     Active Substance: FLECAINIDE
     Route: 048
     Dates: start: 2016
  5. FLECAINIDE [Suspect]
     Active Substance: FLECAINIDE
     Indication: HEART RATE INCREASED
     Route: 048
  6. ONE-A-DAY [Concomitant]
     Indication: PRODUCT USED FOR UNKNOWN INDICATION
     Route: 065
  7. VITAMIN D [Concomitant]
     Active Substance: CHOLECALCIFEROL
     Indication: PRODUCT USED FOR UNKNOWN INDICATION
     Route: 065

REACTIONS (5)
  - Intentional product use issue [Recovered/Resolved]
  - Weight increased [Not Recovered/Not Resolved]
  - Fibrosis [Not Recovered/Not Resolved]
  - Palpitations [Recovered/Resolved]
  - Muscular weakness [Recovered/Resolved]
